FAERS Safety Report 17093141 (Version 1)
Quarter: 2019Q4

REPORT INFORMATION
  Report Type: Other
  Country: CN (occurrence: CN)
  Receive Date: 20191129
  Receipt Date: 20191129
  Transmission Date: 20200122
  Serious: Yes (Hospitalization)
  Sender: FDA-Public Use
  Company Number: CN-APOTEX-2019AP025540

PATIENT
  Age: 40 Year
  Sex: Male

DRUGS (2)
  1. SEROXAT [Suspect]
     Active Substance: PAROXETINE HYDROCHLORIDE
     Indication: SLEEP DISORDER
     Dosage: 1 DF, QD (TABLET)
     Route: 048
     Dates: start: 20191107, end: 20191107
  2. OXAZEPAM. [Suspect]
     Active Substance: OXAZEPAM
     Indication: SLEEP DISORDER
     Dosage: 2 DF, QD (TABLET)
     Route: 048
     Dates: start: 20191107, end: 20191107

REACTIONS (5)
  - Fatigue [Unknown]
  - Agitation [Recovering/Resolving]
  - Abdominal discomfort [Recovering/Resolving]
  - Poor quality sleep [Recovering/Resolving]
  - Decreased appetite [Recovering/Resolving]

NARRATIVE: CASE EVENT DATE: 20191107
